FAERS Safety Report 9156762 (Version 1)
Quarter: 2013Q1

REPORT INFORMATION
  Report Type: Spontaneous
  Country: DK (occurrence: None)
  Receive Date: 20130206
  Receipt Date: 20130206
  Transmission Date: 20140127
  Serious: Yes (Hospitalization)
  Sender: FDA-Public Use
  Company Number: AG-2013-0203

PATIENT
  Age: 75 Year
  Sex: Male
  Weight: 78 kg

DRUGS (6)
  1. CHLORAMBUCIL (CHLORAMBUCIL) (UNKNOWN) [Suspect]
     Indication: CHRONIC LYMPHOCYTIC LEUKAEMIA
     Dosage: 46 MILLIGRAM (46 MILLIGRAM, 1 IN 1 CYCLICAL), UNKNOWN
     Dates: start: 20121218
  2. ALLOPURINOL [Concomitant]
  3. ZARATOR (ATORVASTATIN) [Concomitant]
  4. ASPIRIN (ACETYLSALICYLIC ACID) [Concomitant]
  5. FUROSEMIDE (FUROSEMIDE) [Concomitant]
  6. CALEOROID [Concomitant]

REACTIONS (9)
  - Dehydration [None]
  - Confusional state [None]
  - Asthenia [None]
  - Haemoglobin decreased [None]
  - Platelet count decreased [None]
  - White blood cell count increased [None]
  - Blood creatinine increased [None]
  - Pyrexia [None]
  - General physical condition abnormal [None]
